FAERS Safety Report 10056133 (Version 1)
Quarter: 2014Q2

REPORT INFORMATION
  Report Type: Report from Study
  Country: AR (occurrence: AR)
  Receive Date: 20140403
  Receipt Date: 20140403
  Transmission Date: 20141212
  Serious: Yes (Other)
  Sender: FDA-Public Use
  Company Number: PHHY2014AR039815

PATIENT
  Age: 62 Year
  Sex: Female

DRUGS (1)
  1. EXFORGE D [Suspect]
     Indication: HYPERTENSION
     Dosage: 160/10/12.5MG, DAILY
     Route: 048

REACTIONS (3)
  - Fall [Unknown]
  - Foot fracture [Recovering/Resolving]
  - Pain [Recovering/Resolving]
